FAERS Safety Report 5420116-0 (Version None)
Quarter: 2007Q3

REPORT INFORMATION
  Report Type: 
  Country: None (occurrence: None)
  Receive Date: 20070820
  Receipt Date: 20070809
  Transmission Date: 20080115
  Serious: Yes (Other)
  Sender: FDA-Public Use
  Company Number: RO-PFIZER INC-2007067611

PATIENT
  Age: 78 Year
  Sex: Female

DRUGS (2)
  1. ACCUPRO [Suspect]
     Route: 048
     Dates: start: 20070701, end: 20070806
  2. INDAPAMIDE [Concomitant]

REACTIONS (1)
  - THROMBOCYTOPENIC PURPURA [None]
